FAERS Safety Report 5863660-4 (Version None)
Quarter: 2008Q3

REPORT INFORMATION
  Report Type: 
  Country: None (occurrence: None)
  Receive Date: 20080828
  Receipt Date: 20080813
  Transmission Date: 20090109
  Serious: Yes (Other)
  Sender: FDA-Public Use
  Company Number: SE-PFIZER INC-2008068341

PATIENT
  Sex: Female

DRUGS (5)
  1. PREDNISOLONE [Suspect]
     Indication: RHEUMATOID ARTHRITIS
     Dates: start: 20040101, end: 20071025
  2. ACETAMINOPHEN [Concomitant]
  3. ASPIRIN [Concomitant]
  4. CITALOPRAM HYDROBROMIDE [Concomitant]
  5. KALCIPOS [Concomitant]

REACTIONS (5)
  - HEADACHE [None]
  - MENTAL DISORDER [None]
  - MUSCLE ATROPHY [None]
  - THROMBOSIS [None]
  - UPPER LIMB FRACTURE [None]
